FAERS Safety Report 13774776 (Version 1)
Quarter: 2017Q3

REPORT INFORMATION
  Report Type: Spontaneous
  Country: FR (occurrence: FR)
  Receive Date: 20170720
  Receipt Date: 20170720
  Transmission Date: 20171127
  Serious: Yes (Life-Threatening)
  Sender: FDA-Public Use
  Company Number: FR-GUERBET-FR-20160448

PATIENT
  Age: 80 Year
  Sex: Male

DRUGS (9)
  1. LIPIODOL [Suspect]
     Active Substance: ETHIODIZED OIL
     Indication: THERAPEUTIC EMBOLISATION
     Route: 013
     Dates: start: 20161012, end: 20161012
  2. FLUMAZENIL. [Concomitant]
     Active Substance: FLUMAZENIL
     Indication: PRODUCT USED FOR UNKNOWN INDICATION
     Route: 065
  3. ACUPAN [Concomitant]
     Active Substance: NEFOPAM HYDROCHLORIDE
     Indication: PRODUCT USED FOR UNKNOWN INDICATION
     Route: 042
     Dates: start: 20161012, end: 20161012
  4. VISIPAQUE [Concomitant]
     Active Substance: IODIXANOL
     Indication: THERAPEUTIC EMBOLISATION
     Route: 013
     Dates: start: 20161012, end: 20161012
  5. CURASPON [Concomitant]
     Indication: THERAPEUTIC EMBOLISATION
     Route: 013
     Dates: start: 20161012, end: 20161012
  6. ZOPHREN [Concomitant]
     Active Substance: ONDANSETRON
     Indication: PROPHYLAXIS OF NAUSEA AND VOMITING
     Dosage: 8 MG/4 ML
     Route: 042
     Dates: start: 20161012, end: 20161012
  7. DUPHALAC [Concomitant]
     Active Substance: LACTULOSE
     Indication: HEPATIC ENCEPHALOPATHY
     Route: 065
  8. SERESTA [Suspect]
     Active Substance: OXAZEPAM
     Indication: DELIRIUM TREMENS
     Route: 048
     Dates: start: 20161013, end: 20161013
  9. DOXORUBICIN [Concomitant]
     Active Substance: DOXORUBICIN
     Indication: THERAPEUTIC EMBOLISATION
     Route: 013
     Dates: start: 20161012, end: 20161012

REACTIONS (2)
  - Acute respiratory distress syndrome [Recovered/Resolved]
  - Lung disorder [Recovered/Resolved]

NARRATIVE: CASE EVENT DATE: 20161015
